FAERS Safety Report 5954185-6 (Version None)
Quarter: 2008Q4

REPORT INFORMATION
  Report Type: 
  Country: None (occurrence: None)
  Receive Date: 20081117
  Receipt Date: 20081106
  Transmission Date: 20090506
  Serious: Yes (Other)
  Sender: FDA-Public Use
  Company Number: JP-BRISTOL-MYERS SQUIBB COMPANY-14397335

PATIENT
  Age: 71 Year
  Sex: Female

DRUGS (4)
  1. TAXOL [Suspect]
     Indication: OVARIAN CANCER
     Dosage: 1 DOSAGE FORM: 2348 UNITS NOT SPECIFIED
     Route: 041
  2. PARAPLATIN [Suspect]
     Indication: OVARIAN CANCER
     Dosage: 1 DOSAGE FORM: 16125 UNITS NOT SPECIFIED
     Route: 041
  3. DOCETAXEL [Suspect]
     Indication: OVARIAN CANCER
     Dosage: 1 DOSAGE FORM: 780 UNITS NOT SPECIFIED
  4. IRINOTECAN HYDROCHLORIDE [Suspect]
     Indication: OVARIAN CANCER
     Dosage: 1 DOSAGE FORM: 3400 UNITS NOT SPECIFIED

REACTIONS (1)
  - MYELODYSPLASTIC SYNDROME [None]
